FAERS Safety Report 12143113 (Version 2)
Quarter: 2016Q2

REPORT INFORMATION
  Report Type: Report from Study
  Country: JP (occurrence: JP)
  Receive Date: 20160303
  Receipt Date: 20160519
  Transmission Date: 20160815
  Serious: No
  Sender: FDA-Public Use
  Company Number: JP-FRI-1000083069

PATIENT
  Age: 54 Year
  Sex: Female
  Weight: 66.7 kg

DRUGS (18)
  1. EPRAZINONE HYDROCHLORIDE [Concomitant]
     Active Substance: EPRAZINONE HYDROCHLORIDE
     Indication: NASOPHARYNGITIS
     Dates: start: 20121016, end: 20121023
  2. CHONDROITIN SULFATE SODIUM [Concomitant]
     Active Substance: CHONDROITIN SULFATE (CHICKEN)
     Dates: start: 20121112, end: 20121112
  3. ARIPIPRAZOLE. [Concomitant]
     Active Substance: ARIPIPRAZOLE
     Indication: SCHIZOPHRENIA
     Dates: end: 20120829
  4. LEVOFLOXACIN HEMIHYDRATE [Concomitant]
     Active Substance: LEVOFLOXACIN
     Indication: NASOPHARYNGITIS
     Dates: start: 20121016, end: 20121023
  5. ARIPIPRAZOLE. [Concomitant]
     Active Substance: ARIPIPRAZOLE
     Dates: start: 20120906
  6. KAKKONTOU [Concomitant]
     Active Substance: HERBALS
     Indication: NASOPHARYNGITIS
     Dates: start: 20121128
  7. L-CARBOCYSTEINE [Concomitant]
     Active Substance: CARBOCYSTEINE
     Indication: NASOPHARYNGITIS
     Dates: start: 20121016, end: 20121023
  8. INDOMETACIN [Concomitant]
     Active Substance: INDOMETHACIN
     Indication: LIGAMENT SPRAIN
     Dates: start: 20121002, end: 20121112
  9. MEFENAMIC ACID. [Concomitant]
     Active Substance: MEFENAMIC ACID
     Indication: LIGAMENT SPRAIN
     Dates: start: 20121023, end: 20121102
  10. CARIPRAZINE [Suspect]
     Active Substance: CARIPRAZINE
     Indication: SCHIZOPHRENIA
     Dates: start: 20120904, end: 20120905
  11. MYDRIN P [Concomitant]
     Active Substance: PHENYLEPHRINE HYDROCHLORIDE\TROPICAMIDE
     Dates: start: 20121128, end: 20121128
  12. FLUNITRAZEPAM [Concomitant]
     Active Substance: FLUNITRAZEPAM
     Indication: INSOMNIA
     Dates: start: 20120918
  13. MYDRIN P [Concomitant]
     Active Substance: PHENYLEPHRINE HYDROCHLORIDE\TROPICAMIDE
     Indication: MYDRIASIS
     Dates: start: 20120905, end: 20120905
  14. CHONDROITIN SULFATE SODIUM [Concomitant]
     Active Substance: CHONDROITIN SULFATE (CHICKEN)
     Indication: LIGAMENT SPRAIN
     Dates: start: 20121023, end: 20121023
  15. CHONDROITIN SULFATE SODIUM [Concomitant]
     Active Substance: CHONDROITIN SULFATE (CHICKEN)
     Dates: start: 20121027, end: 20121027
  16. CHONDROITIN SULFATE SODIUM [Concomitant]
     Active Substance: CHONDROITIN SULFATE (CHICKEN)
     Dates: start: 20121030, end: 20121030
  17. TEPRENONE [Concomitant]
     Active Substance: TEPRENONE
     Indication: GASTRITIS PROPHYLAXIS
     Dates: start: 20121016, end: 20121023
  18. VOLTMIE [Concomitant]
     Indication: GASTRITIS PROPHYLAXIS
     Dates: start: 20121023, end: 20121102

REACTIONS (1)
  - Cataract cortical [Not Recovered/Not Resolved]

NARRATIVE: CASE EVENT DATE: 20120905
